FAERS Safety Report 19551843 (Version 2)
Quarter: 2021Q4

REPORT INFORMATION
  Report Type: Spontaneous
  Country: JP (occurrence: JP)
  Receive Date: 20210715
  Receipt Date: 20211026
  Transmission Date: 20220303
  Serious: Yes (Other)
  Sender: FDA-Public Use
  Company Number: NVSJ2021JP010704

PATIENT
  Sex: Female

DRUGS (2)
  1. TASIGNA [Suspect]
     Active Substance: NILOTINIB
     Indication: Chronic myeloid leukaemia
     Dosage: 300 MG, BID
     Route: 048
     Dates: start: 20210522, end: 20210703
  2. TASIGNA [Suspect]
     Active Substance: NILOTINIB
     Dosage: 600 MG
     Route: 048
     Dates: start: 20210731

REACTIONS (2)
  - Hepatic function abnormal [Recovered/Resolved]
  - Transaminases increased [Unknown]

NARRATIVE: CASE EVENT DATE: 20210703
